FAERS Safety Report 6733320-6 (Version None)
Quarter: 2010Q2

REPORT INFORMATION
  Report Type: 
  Country: None (occurrence: None)
  Receive Date: 20100520
  Receipt Date: 20100510
  Transmission Date: 20101027
  Serious: Yes (Hospitalization)
  Sender: FDA-Public Use
  Company Number: FR-PFIZER INC-2009315082

PATIENT
  Age: 72 Year
  Sex: Female

DRUGS (12)
  1. TAHOR [Suspect]
     Dosage: UNK
     Route: 048
  2. LIPANTHYL [Interacting]
     Indication: DYSLIPIDAEMIA
     Dosage: UNK
     Route: 048
  3. LYRICA [Concomitant]
     Dosage: UNK
  4. INSULIN [Concomitant]
     Dosage: UNK
  5. DOLIPRANE [Concomitant]
     Dosage: UNK
  6. MOPRAL [Concomitant]
     Dosage: UNK
  7. MEBEVERINE [Concomitant]
     Dosage: UNK
  8. LERCAN [Concomitant]
     Dosage: UNK
  9. FLUDEX [Concomitant]
     Dosage: UNK
  10. ENALAPRIL MALEATE [Concomitant]
     Dosage: UNK
  11. SKENAN [Concomitant]
     Dosage: UNK
  12. DAFLON [Concomitant]
     Dosage: UNK

REACTIONS (4)
  - HYPERKALAEMIA [None]
  - OVERDOSE [None]
  - RENAL FAILURE ACUTE [None]
  - RHABDOMYOLYSIS [None]
